FAERS Safety Report 17954605 (Version 12)
Quarter: 2021Q1

REPORT INFORMATION
  Report Type: Spontaneous
  Country: CA (occurrence: CA)
  Receive Date: 20200629
  Receipt Date: 20210303
  Transmission Date: 20210419
  Serious: Yes (Other)
  Sender: FDA-Public Use
  Company Number: CA-CELLTRION INC.-2020CA020391

PATIENT

DRUGS (14)
  1. INFLECTRA [Suspect]
     Active Substance: INFLIXIMAB-DYYB
     Dosage: 400 MG EVERY 4 WEEKS
     Route: 042
     Dates: start: 20200416
  2. INFLECTRA [Suspect]
     Active Substance: INFLIXIMAB-DYYB
     Indication: CROHN^S DISEASE
     Dosage: 400 MG, AT WEEK 0,2,6 WEEKS,THEN EVERY 8 WEEKS
     Route: 042
     Dates: start: 20200302, end: 20200416
  3. INFLECTRA [Suspect]
     Active Substance: INFLIXIMAB-DYYB
     Dosage: 5 MG/KG ONCE,THEN EVERY 4 WEEKS
     Route: 042
     Dates: start: 20200428, end: 20200428
  4. MEZAVANT [Concomitant]
     Active Substance: MESALAMINE
     Dosage: 4.8 G, 1X/DAY
     Route: 048
  5. INFLECTRA [Suspect]
     Active Substance: INFLIXIMAB-DYYB
     Dosage: 10 MG/KG (900 MG) EVERY 4 WEEKS
     Route: 042
     Dates: start: 20200818
  6. INFLECTRA [Suspect]
     Active Substance: INFLIXIMAB-DYYB
     Dosage: 10 MG/KG (900 MG) EVERY 4 WEEKS
     Route: 042
     Dates: start: 20200915
  7. INFLECTRA [Suspect]
     Active Substance: INFLIXIMAB-DYYB
     Dosage: 10 MG/KG (900 MG) EVERY 4 WEEKS
     Route: 042
     Dates: start: 20201214, end: 20201214
  8. INFLECTRA [Suspect]
     Active Substance: INFLIXIMAB-DYYB
     Dosage: 10 MG/KG (900 MG) EVERY 4 WEEKS
     Route: 042
     Dates: start: 20210222
  9. INFLECTRA [Suspect]
     Active Substance: INFLIXIMAB-DYYB
     Dosage: 10 MG/KG (900 MG) EVERY 4 WEEKS
     Route: 042
     Dates: start: 20200514
  10. INFLECTRA [Suspect]
     Active Substance: INFLIXIMAB-DYYB
     Dosage: 10 MG/KG (900 MG) EVERY 4 WEEKS
     Route: 042
     Dates: start: 20200622
  11. INFLECTRA [Suspect]
     Active Substance: INFLIXIMAB-DYYB
     Dosage: 10 MG/KG (900 MG) EVERY 4 WEEKS
     Route: 042
     Dates: start: 20210114
  12. INFLECTRA [Suspect]
     Active Substance: INFLIXIMAB-DYYB
     Dosage: 10 MG/KG (900 MG) EVERY 4 WEEKS
     Route: 042
     Dates: start: 20201016
  13. PREDNISONE. [Concomitant]
     Active Substance: PREDNISONE
     Dosage: 40 MG, 1X/DAY
     Route: 048
  14. INFLECTRA [Suspect]
     Active Substance: INFLIXIMAB-DYYB
     Dosage: 10 MG/KG (900 MG) EVERY 4 WEEKS
     Route: 042
     Dates: start: 20200720

REACTIONS (16)
  - Weight decreased [Unknown]
  - Off label use [Unknown]
  - Product use issue [Unknown]
  - Haemoglobin decreased [Unknown]
  - Sinus congestion [Recovering/Resolving]
  - Intentional product use issue [Unknown]
  - Blood pressure fluctuation [Unknown]
  - Anaemia [Unknown]
  - Inappropriate schedule of product administration [Unknown]
  - Condition aggravated [Recovered/Resolved]
  - Steroid dependence [Unknown]
  - Fatigue [Not Recovered/Not Resolved]
  - Oropharyngeal pain [Recovering/Resolving]
  - Poor venous access [Unknown]
  - Faecal calprotectin increased [Recovered/Resolved]
  - Heart rate decreased [Unknown]

NARRATIVE: CASE EVENT DATE: 2020
